FAERS Safety Report 6135693-4 (Version None)
Quarter: 2009Q1

REPORT INFORMATION
  Report Type: 
  Country: None (occurrence: None)
  Receive Date: 20090327
  Receipt Date: 20090325
  Transmission Date: 20090719
  Serious: Yes (Other)
  Sender: FDA-Public Use
  Company Number: US-ABBOTT-09P-163-0564592-00

PATIENT
  Sex: Female

DRUGS (10)
  1. HUMIRA [Suspect]
     Indication: CROHN'S DISEASE
  2. ASACOL [Concomitant]
     Indication: CROHN'S DISEASE
  3. ATIVAN [Concomitant]
     Indication: DRUG USE FOR UNKNOWN INDICATION
  4. CELEXA [Concomitant]
     Indication: DEPRESSION
  5. NAPROXEN [Concomitant]
     Indication: DRUG USE FOR UNKNOWN INDICATION
  6. PERCOCET [Concomitant]
     Indication: DRUG USE FOR UNKNOWN INDICATION
  7. PREDNISONE [Concomitant]
     Indication: DRUG USE FOR UNKNOWN INDICATION
  8. PRILOSEC [Concomitant]
     Indication: DYSPEPSIA
  9. REQUIP [Concomitant]
     Indication: DRUG USE FOR UNKNOWN INDICATION
  10. WELLBUTRIN [Concomitant]
     Indication: DEPRESSION

REACTIONS (1)
  - ABORTION INDUCED [None]
